FAERS Safety Report 18087372 (Version 2)
Quarter: 2020Q3

REPORT INFORMATION
  Report Type: Spontaneous
  Country: JP (occurrence: JP)
  Receive Date: 20200729
  Receipt Date: 20200731
  Transmission Date: 20201103
  Serious: Yes (Disabling, Other)
  Sender: FDA-Public Use
  Company Number: JP-OTSUKA-2019_042056AA

PATIENT
  Age: 48 Year
  Sex: Male
  Weight: 60 kg

DRUGS (43)
  1. ABILIFY [Suspect]
     Active Substance: ARIPIPRAZOLE
     Indication: SCHIZOPHRENIA
     Dosage: 12 MG (2 TABLETS)/DAY, QD (BEFORE SLEEP)
     Route: 048
     Dates: start: 20111004
  2. ABILIFY [Suspect]
     Active Substance: ARIPIPRAZOLE
     Indication: SCHIZOPHRENIA
     Dosage: 12 MG(2 TABS)/DAY, BID (AFTER BREAKFAST AND DINNER)
     Route: 048
     Dates: start: 20140205
  3. SILECE [Concomitant]
     Active Substance: FLUNITRAZEPAM
     Indication: INSOMNIA
     Dosage: 4 MG (2 TABS)/DAY, QD (BEFORE SLEEP)
     Route: 048
     Dates: start: 20130508
  4. LEXOTAN [Concomitant]
     Active Substance: BROMAZEPAM
     Dosage: 5 MG (1 TAB), AS NEEDED
     Route: 048
     Dates: start: 20120310
  5. ABILIFY [Suspect]
     Active Substance: ARIPIPRAZOLE
     Dosage: 6 MG (2 TABS)/DAY, BID (AFTER BREAKFAST AND DINNER)
     Route: 048
     Dates: start: 20130109, end: 20130423
  6. ABILIFY [Suspect]
     Active Substance: ARIPIPRAZOLE
     Dosage: 6 MG (2 TABS)/DAY, BID (AFTER BREAKFAST AND DINNER)
     Route: 048
     Dates: start: 20131015
  7. ABILIFY [Suspect]
     Active Substance: ARIPIPRAZOLE
     Dosage: 18 MG (3TABS)/DAY, BID (2 TABS AFTER BREAKFAST AND 1 TAB AFTER DINNER)
     Route: 048
     Dates: start: 20140611, end: 201407
  8. ABILIFY [Suspect]
     Active Substance: ARIPIPRAZOLE
     Dosage: 24 MG (2 TABS)/DAY, BID (AFTER BREAKFAST AND DINNER)
     Route: 048
     Dates: start: 20151130
  9. ZYPREXA [Suspect]
     Active Substance: OLANZAPINE
     Indication: HALLUCINATION
     Dosage: 10 MG (1 TAB)/DAY, QD (BEFORE SLEEP)
     Route: 048
     Dates: start: 20141224, end: 20150707
  10. ZYPREXA ZYDIS [Suspect]
     Active Substance: OLANZAPINE
     Indication: SEDATION
     Dosage: 5 MG (1 TAB)/DAY, QD (BEFORE LUNCH)
     Route: 048
     Dates: start: 20130517
  11. REFLEX [Concomitant]
     Active Substance: MIRTAZAPINE
     Dosage: 15 MG (1 TAB)/DAY, QD (BEFORE SLEEP)
     Route: 048
     Dates: start: 20120720
  12. REFLEX [Concomitant]
     Active Substance: MIRTAZAPINE
     Dosage: 30 MG (2 TABS)/DAY, QD (BEFORE SLEEP)
     Route: 048
     Dates: start: 20120808
  13. PARULEON TAIYO [Concomitant]
     Indication: INSOMNIA
     Dosage: 0.25 MG, QD
     Route: 048
     Dates: start: 20120508
  14. PARULEON TAIYO [Concomitant]
     Dosage: 0.5 MG (2 TABS)/DAY, QD (BEFORE SLEEP)
     Route: 048
     Dates: start: 20120904
  15. ABILIFY [Suspect]
     Active Substance: ARIPIPRAZOLE
     Dosage: 6 MG, QD (BEFORE SLEEP)
     Route: 048
     Dates: start: 20120508, end: 201210
  16. ABILIFY [Suspect]
     Active Substance: ARIPIPRAZOLE
     Indication: DEPRESSION
     Dosage: 6 MG (2 TABS)/DAY, BID (AFTER BREAKFAST AND DINNER)
     Route: 048
     Dates: start: 20120808
  17. ABILIFY [Suspect]
     Active Substance: ARIPIPRAZOLE
     Dosage: 6 MG (2 TABS)/DAY, BID (AFTER BREAKFAST AND DINNER)
     Route: 048
     Dates: start: 20120904, end: 201210
  18. ABILIFY [Suspect]
     Active Substance: ARIPIPRAZOLE
     Indication: SCHIZOPHRENIA
     Dosage: 24 MG (2 TABS)/DAY, BID (AFTER BREAKFAST AND DINNER)
     Route: 048
     Dates: start: 20140704
  19. ZYPREXA [Suspect]
     Active Substance: OLANZAPINE
     Indication: SEDATION
     Dosage: 10 MG (1 TAB)/DAY, QD (BEFORE SLEEP)
     Route: 048
     Dates: start: 20130424
  20. ZYPREXA [Suspect]
     Active Substance: OLANZAPINE
     Dosage: 10 MG (1 TAB)/DAY, QD (BEFORE SLEEP)
     Route: 048
     Dates: start: 20130517
  21. LEXOTAN [Concomitant]
     Active Substance: BROMAZEPAM
     Indication: ANXIOLYTIC THERAPY
     Dosage: 4 MG (2 TABS)/DAY, BID (AFTER BREAKFAST AND DINNER)
     Route: 048
     Dates: start: 20111004
  22. LEXOTAN [Concomitant]
     Active Substance: BROMAZEPAM
     Dosage: 5 MG, BID
     Route: 048
     Dates: start: 20120720
  23. SULPIRIDE AMEL [Concomitant]
     Active Substance: SULPIRIDE
     Indication: PRODUCT USED FOR UNKNOWN INDICATION
     Dosage: 150 MG (3 TABS)/DAY, TID (AFTER EACH MEAL)
     Route: 065
     Dates: start: 20111004
  24. LEVOTOMIN [Concomitant]
     Active Substance: LEVOMEPROMAZINE
     Indication: PRODUCT USED FOR UNKNOWN INDICATION
     Dosage: 25 MG (1 TAB)/DAY, QD (BEFORE SLEEP)
     Route: 065
     Dates: start: 20111004
  25. ZYPREXA ZYDIS [Suspect]
     Active Substance: OLANZAPINE
     Indication: IRRITABILITY
     Dosage: 5 MG (1 TAB)/DAY, AS NEEDED
     Route: 048
     Dates: start: 20130206
  26. ZYPREXA [Suspect]
     Active Substance: OLANZAPINE
     Dosage: 5 MG (1 TAB)/DAY, QD (BEFORE SLEEP)
     Route: 048
     Dates: start: 20140611, end: 20140704
  27. REFLEX [Concomitant]
     Active Substance: MIRTAZAPINE
     Indication: ANTIDEPRESSANT THERAPY
     Dosage: 15 MG (1 TAB)/DAY, QD (BEFORE SLEEP)
     Route: 048
     Dates: start: 20111004
  28. REFLEX [Concomitant]
     Active Substance: MIRTAZAPINE
     Dosage: 45 MG (3 TABS)/DAY, QD (BEFORE SLEEP)
     Route: 048
     Dates: start: 20120904
  29. TOFRANIL [Concomitant]
     Active Substance: IMIPRAMINE HYDROCHLORIDE
     Indication: PRODUCT USED FOR UNKNOWN INDICATION
     Dosage: 50 MG (2 TABS)/DAY, BID (AFTER BREAKFAST AND DINNER)
     Route: 065
     Dates: start: 20111004
  30. FLUNITRAZEPAM AMEL [Concomitant]
     Active Substance: FLUNITRAZEPAM
     Dosage: 4 MG (2 TABS)/DAY, QD (BEFORE SLEEP)
     Route: 048
     Dates: start: 20140904
  31. ZYPREXA [Suspect]
     Active Substance: OLANZAPINE
     Indication: HALLUCINATION
     Dosage: 15 MG (3 TABS)/DAY, BID (1 TAB AFTER LUNCH AND 2 TABS BEFORE SLEEP)
     Route: 048
     Dates: start: 20131015
  32. REFLEX [Concomitant]
     Active Substance: MIRTAZAPINE
     Dosage: 30 MG (2 TABS)/DAY, QD (BEFORE SLEEP)
     Route: 048
     Dates: start: 20111021
  33. REFLEX [Concomitant]
     Active Substance: MIRTAZAPINE
     Dosage: 15 MG (1 TAB)/DAY, QD (BEFORE SLEEP)
     Route: 048
     Dates: start: 20120508
  34. HALCION [Concomitant]
     Active Substance: TRIAZOLAM
     Indication: INSOMNIA
     Dosage: 0.5 MG (2 TABS)/DAY, QD (BEFORE SLEEP)
     Route: 048
     Dates: start: 20130508
  35. FLUNITRAZEPAM AMEL [Concomitant]
     Active Substance: FLUNITRAZEPAM
     Dosage: 4 MG (2 TABS)/DAY, QD (BEFORE SLEEP)
     Route: 048
     Dates: end: 20180202
  36. LEXOTAN [Concomitant]
     Active Substance: BROMAZEPAM
     Indication: ANXIOLYTIC THERAPY
     Dosage: 5 MG (1 TAB), AS NEEDED
     Route: 048
     Dates: start: 20111004
  37. AMOBAN [Concomitant]
     Active Substance: ZOPICLONE
     Indication: PRODUCT USED FOR UNKNOWN INDICATION
     Dosage: 7.5 MG (1 TAB)/DAY, QD (BEFORE SLEEP)
     Route: 065
     Dates: start: 20111004
  38. ABILIFY [Suspect]
     Active Substance: ARIPIPRAZOLE
     Indication: SCHIZOPHRENIA
     Dosage: 6 MG (2 TABS)/DAY, BID (AFTER BREAKFAST AND DINNER)
     Route: 048
     Dates: start: 20151130
  39. ZYPREXA ZYDIS [Suspect]
     Active Substance: OLANZAPINE
     Indication: HALLUCINATION
     Dosage: 5 MG (1 TAB)/DAY, AS NEEDED
     Route: 048
     Dates: start: 20130424
  40. ZYPREXA [Suspect]
     Active Substance: OLANZAPINE
     Indication: SEDATION
     Dosage: 5 MG (1 TAB)/DAY, QD (BEFORE SLEEP)
     Route: 048
     Dates: start: 20140205
  41. ZYPREXA [Suspect]
     Active Substance: OLANZAPINE
     Dosage: 10 MG (2 TABS)/DAY, QD (BEFORE SLEEP)
     Route: 048
     Dates: start: 20140228
  42. TRIAZOLAM. [Concomitant]
     Active Substance: TRIAZOLAM
     Indication: INSOMNIA
     Dosage: 0.5 MG (2 TABS)/DAY, QD (BEFORE SLEEP)
     Route: 048
     Dates: end: 20180202
  43. FLUNITRAZEPAM AMEL [Concomitant]
     Active Substance: FLUNITRAZEPAM
     Indication: INSOMNIA
     Dosage: 2 MG (1TABS)/DAY, QD (BEFORE SLEEP)
     Route: 048
     Dates: start: 20140407

REACTIONS (9)
  - Somnolence [Unknown]
  - Schizophrenia [Unknown]
  - Parkinsonism [Unknown]
  - Migraine [Unknown]
  - Depressive symptom [Unknown]
  - Obesity [Unknown]
  - Fall [Unknown]
  - Dyskinesia [Unknown]
  - Amnesia [Unknown]

NARRATIVE: CASE EVENT DATE: 20150510
